FAERS Safety Report 24386152 (Version 2)
Quarter: 2024Q4

REPORT INFORMATION
  Report Type: Report from Study
  Country: US (occurrence: US)
  Receive Date: 20241001
  Receipt Date: 20241025
  Transmission Date: 20250114
  Serious: Yes (Death, Other)
  Sender: BAYER HEALTHCARE PHARMACEUTICALS INC.
  Company Number: US-BAYER-2024A140063

PATIENT
  Age: 81 Year
  Sex: Male

DRUGS (1)
  1. KERENDIA [Suspect]
     Active Substance: FINERENONE
     Indication: Chronic kidney disease
     Dosage: 10 MG, UNK

REACTIONS (3)
  - Death [Fatal]
  - Cardiac arrest [None]
  - COVID-19 [None]

NARRATIVE: CASE EVENT DATE: 20240101
